FAERS Safety Report 6850275-4 (Version None)
Quarter: 2010Q3

REPORT INFORMATION
  Report Type: 
  Country: None (occurrence: None)
  Receive Date: 20100716
  Receipt Date: 20071019
  Transmission Date: 20110219
  Serious: No
  Sender: FDA-Public Use
  Company Number: US-PFIZER INC-2007086380

PATIENT
  Sex: Female
  Weight: 86.2 kg

DRUGS (9)
  1. CHANTIX [Suspect]
     Indication: SMOKING CESSATION THERAPY
     Dates: start: 20071005, end: 20071001
  2. XANAX [Suspect]
  3. ATENOLOL [Concomitant]
     Indication: BLOOD PRESSURE
  4. AMITRIPTYLINE HYDROCHLORIDE [Concomitant]
     Indication: ANXIETY
  5. CELEXA [Concomitant]
     Indication: ANXIETY
  6. RISPERIDONE [Concomitant]
     Indication: ANXIETY
  7. WELLBUTRIN [Concomitant]
     Indication: DEPRESSION
  8. WELLBUTRIN [Concomitant]
     Indication: ANXIETY
  9. SERAX [Concomitant]

REACTIONS (3)
  - ANXIETY [None]
  - DEPRESSION [None]
  - NAUSEA [None]
